FAERS Safety Report 5346909-6 (Version None)
Quarter: 2007Q2

REPORT INFORMATION
  Report Type: 
  Country: None (occurrence: None)
  Receive Date: 20070501
  Receipt Date: 20070103
  Transmission Date: 20071010
  Serious: Yes (Hospitalization)
  Sender: FDA-Public Use
  Company Number: ACETADOTE_021

PATIENT
  Age: 26 Year
  Sex: Female

DRUGS (2)
  1. ACETADOTE [Suspect]
     Indication: OVERDOSE
     Dosage: SEE NOTE IN SECTION B5
     Dates: start: 20060920
  2. DIPHENHYDRAMINE HCL [Concomitant]

REACTIONS (1)
  - ANAPHYLACTIC REACTION [None]
